FAERS Safety Report 6999717-4 (Version None)
Quarter: 2010Q3

REPORT INFORMATION
  Report Type: 
  Country: None (occurrence: None)
  Receive Date: 20100920
  Receipt Date: 20070605
  Transmission Date: 20110219
  Serious: Yes (Other)
  Sender: FDA-Public Use
  Company Number: US-ASTRAZENECA-2006UW24117

PATIENT
  Sex: Female
  Weight: 89.4 kg

DRUGS (17)
  1. SEROQUEL [Suspect]
     Indication: BIPOLAR DISORDER
     Route: 048
     Dates: start: 19990101, end: 20010101
  2. SEROQUEL [Suspect]
     Route: 048
     Dates: start: 20010731
  3. WEIGHT SMART [Concomitant]
     Indication: WEIGHT CONTROL
  4. ZYPREXA [Concomitant]
     Dates: start: 20010101, end: 20010101
  5. LITHIUM CARBONATE [Concomitant]
  6. EFFEXOR [Concomitant]
     Dates: start: 20000101
  7. VICODIN [Concomitant]
     Indication: PAIN
     Dosage: 1-2 Q AND 4-6H AS NEEDED
     Dates: start: 20010613
  8. PROPRANOLOL [Concomitant]
     Dates: start: 20010531
  9. AMBIEN [Concomitant]
     Dates: start: 20010531
  10. AC-LITHOBID [Concomitant]
     Dates: start: 20010421
  11. PRILOSEC [Concomitant]
     Route: 048
     Dates: start: 20020402
  12. NAPROSYN [Concomitant]
     Route: 048
     Dates: start: 20020402
  13. DEPAKOTE [Concomitant]
     Route: 048
     Dates: start: 20020124
  14. OLANZAPINE [Concomitant]
     Indication: DEPRESSION
     Dosage: EVERY 90 DAYS OR AS NEEDED
     Dates: start: 20000608
  15. OLANZAPINE [Concomitant]
     Indication: ANXIETY
     Dosage: EVERY 90 DAYS OR AS NEEDED
     Dates: start: 20000608
  16. OLANZAPINE [Concomitant]
     Indication: INSOMNIA
     Dosage: EVERY 90 DAYS OR AS NEEDED
     Dates: start: 20000608
  17. OLANZAPINE [Concomitant]
     Indication: MENTAL IMPAIRMENT
     Dosage: EVERY 90 DAYS OR AS NEEDED
     Dates: start: 20000608

REACTIONS (1)
  - TARDIVE DYSKINESIA [None]
